FAERS Safety Report 19656076 (Version 1)
Quarter: 2021Q3

REPORT INFORMATION
  Report Type: Spontaneous
  Country: US (occurrence: US)
  Receive Date: 20210804
  Receipt Date: 20210804
  Transmission Date: 20211014
  Serious: Yes (Life-Threatening, Hospitalization)
  Sender: FDA-Public Use
  Company Number: None

PATIENT
  Age: 47 Year
  Sex: Female

DRUGS (1)
  1. CASIRIVIMAB/IMDEVIMAB [Suspect]
     Active Substance: CASIRIVIMAB\IMDEVIMAB
     Indication: COVID-19
     Dosage: ?          OTHER FREQUENCY:ONE TIME;?
     Route: 042
     Dates: start: 20210730, end: 20210730

REACTIONS (6)
  - Aphasia [None]
  - Dyspnoea [None]
  - Throat tightness [None]
  - Pulmonary congestion [None]
  - Infusion site erythema [None]
  - Cough [None]

NARRATIVE: CASE EVENT DATE: 20210730
